FAERS Safety Report 9494263 (Version 2)
Quarter: 2013Q3

REPORT INFORMATION
  Report Type: Spontaneous
  Country: US (occurrence: None)
  Receive Date: 20130828
  Receipt Date: 20130924
  Transmission Date: 20140515
  Serious: Yes (Hospitalization)
  Sender: FDA-Public Use
  Company Number: 2013-1349

PATIENT
  Age: 71 Year
  Sex: Male
  Weight: 76.4 kg

DRUGS (3)
  1. CARFILZOMIB [Suspect]
     Indication: PLASMA CELL MYELOMA
     Dosage: 7.1 MG (49.7 MG, DAYS 1,2,15,16 EVERY 28 DAYS), INTRAVENOUS
     Route: 042
     Dates: start: 20121126, end: 20130807
  2. POMALIDOMIDE (POMALIDOMIDE) (POMALIDOMIDE) [Concomitant]
  3. DEXAMETHASONE (DEXAMETHASONE) (DEXAMETHASONE) [Concomitant]

REACTIONS (4)
  - Vomiting [None]
  - Loss of consciousness [None]
  - Syncope [None]
  - Respiratory distress [None]
